FAERS Safety Report 23105297 (Version 1)
Quarter: 2023Q4

REPORT INFORMATION
  Report Type: Spontaneous
  Country: US (occurrence: None)
  Receive Date: 20231023
  Receipt Date: 20231023
  Transmission Date: 20240109
  Serious: Yes (Hospitalization)
  Sender: FDA-Public Use
  Company Number: None

PATIENT
  Age: 71 Year
  Sex: Male
  Weight: 78 kg

DRUGS (1)
  1. FERRIC CARBOXYMALTOSE [Suspect]
     Active Substance: FERRIC CARBOXYMALTOSE
     Dosage: STRENGTH: 50MG/ML INJ,15ML?FREQUENCY : ONCE;?
     Route: 042
     Dates: start: 20230329, end: 20230405

REACTIONS (5)
  - Hypocalcaemia [None]
  - Hypokalaemia [None]
  - Hypomagnesaemia [None]
  - Hypophosphataemia [None]
  - Paraesthesia [None]

NARRATIVE: CASE EVENT DATE: 20220423
